FAERS Safety Report 7429183-6 (Version None)
Quarter: 2011Q2

REPORT INFORMATION
  Report Type: 
  Country: None (occurrence: None)
  Receive Date: 20110421
  Receipt Date: 20110412
  Transmission Date: 20111010
  Serious: Yes (Hospitalization, Other)
  Sender: FDA-Public Use
  Company Number: US-ASTRAZENECA-2010SE56655

PATIENT
  Age: 73 Year
  Sex: Female

DRUGS (8)
  1. NEXIUM [Suspect]
     Dosage: TWICE A DAY
     Route: 048
  2. TOPROL-XL [Suspect]
     Route: 048
  3. PEPCID [Concomitant]
  4. ZANTAC [Concomitant]
  5. VERAPAMIL [Concomitant]
  6. LOTREL [Concomitant]
  7. LISINOPRIL [Suspect]
     Route: 048
  8. STERLAZINE [Concomitant]

REACTIONS (7)
  - DRUG INEFFECTIVE [None]
  - DRUG DOSE OMISSION [None]
  - RECTAL HAEMORRHAGE [None]
  - MALAISE [None]
  - ILL-DEFINED DISORDER [None]
  - BLOOD PRESSURE ABNORMAL [None]
  - NAUSEA [None]
